FAERS Safety Report 8553007 (Version 2)
Quarter: 2013Q2

REPORT INFORMATION
  Report Type: Spontaneous
  Country: US (occurrence: None)
  Receive Date: 20120315
  Receipt Date: 20120703
  Transmission Date: 20140414
  Serious: No
  Sender: FDA-Public Use
  Company Number: PHHY2011US47504

PATIENT
  Age: 52 Year
  Sex: Male

DRUGS (2)
  1. GILENYA [Suspect]
     Indication: MULTIPLE SCLEROSIS
     Route: 048
     Dates: start: 20110520
  2. BETA BLOCKING AGENTS [Concomitant]

REACTIONS (7)
  - NECK PAIN [None]
  - Hypersomnia [None]
  - Musculoskeletal stiffness [None]
  - Pain [None]
  - Memory impairment [None]
  - Feeling abnormal [None]
  - Dizziness [None]
